FAERS Safety Report 6228666-4 (Version None)
Quarter: 2009Q2

REPORT INFORMATION
  Report Type: 
  Country: None (occurrence: None)
  Receive Date: 20090614
  Receipt Date: 20090605
  Transmission Date: 20091009
  Serious: Yes (Hospitalization)
  Sender: FDA-Public Use
  Company Number: PHHY2009JP12941

PATIENT
  Sex: Male

DRUGS (16)
  1. COMTAN [Suspect]
     Indication: PARKINSON'S DISEASE
     Dosage: 400 MG, UNK
     Route: 048
     Dates: start: 20080313, end: 20090401
  2. COMTAN [Suspect]
     Indication: DRUG EFFECT DECREASED
  3. TATHION [Suspect]
     Dosage: UNK
     Route: 042
     Dates: start: 20081101, end: 20090401
  4. MADOPAR [Concomitant]
     Indication: PARKINSON'S DISEASE
     Dosage: 1 DF
     Route: 048
  5. MADOPAR [Concomitant]
     Dosage: 4 DF
     Route: 048
  6. CABASER [Concomitant]
     Indication: PARKINSON'S DISEASE
     Dosage: 1 DF
     Route: 048
     Dates: end: 20090401
  7. MAGNESIUM OXIDE [Concomitant]
     Indication: CONSTIPATION
     Dosage: 3 DF
     Route: 048
     Dates: end: 20090401
  8. DEPAS [Concomitant]
     Indication: ANXIETY
     Dosage: 0.5 MG
     Route: 048
     Dates: start: 20060409, end: 20090401
  9. DAIO-KANZO-TO [Concomitant]
     Dosage: 1 DF
     Route: 048
     Dates: end: 20090401
  10. EXCELASE [Concomitant]
     Dosage: 2.4 MG
     Route: 048
     Dates: start: 20080701, end: 20090401
  11. GASTROM [Concomitant]
     Dosage: 6 G
     Route: 048
     Dates: start: 20071101, end: 20090401
  12. MAGMITT [Concomitant]
     Dosage: 660 MG
     Route: 048
     Dates: start: 20090301, end: 20090401
  13. LAXOBERON [Concomitant]
     Dosage: 2 DF
     Route: 048
     Dates: start: 20090301, end: 20090401
  14. ASPIRIN [Concomitant]
     Indication: CORONARY ARTERY STENOSIS
     Dosage: 1 DF
     Route: 048
     Dates: start: 20080101, end: 20090401
  15. AMOBAN [Concomitant]
     Indication: INSOMNIA
     Dosage: 7.5 MG
     Route: 048
     Dates: start: 20080601, end: 20090401
  16. BONALON [Concomitant]
     Indication: OSTEOPOROSIS
     Dosage: 1 DF, UNK
     Route: 048
     Dates: start: 20080401, end: 20090401

REACTIONS (10)
  - ALANINE AMINOTRANSFERASE INCREASED [None]
  - ANOREXIA [None]
  - ASPARTATE AMINOTRANSFERASE INCREASED [None]
  - BLOOD ALKALINE PHOSPHATASE INCREASED [None]
  - BLOOD LACTATE DEHYDROGENASE INCREASED [None]
  - GAMMA-GLUTAMYLTRANSFERASE INCREASED [None]
  - JAUNDICE [None]
  - LIVER DISORDER [None]
  - MALAISE [None]
  - OVERDOSE [None]
